FAERS Safety Report 4750470-4 (Version None)
Quarter: 2005Q3

REPORT INFORMATION
  Report Type: 
  Country: None (occurrence: None)
  Receive Date: 20050823
  Receipt Date: 20050822
  Transmission Date: 20060218
  Serious: Yes (Other)
  Sender: FDA-Public Use
  Company Number: US-GLAXOSMITHKLINE-A0571244A

PATIENT
  Age: 78 Year
  Sex: Male

DRUGS (7)
  1. FLONASE [Suspect]
     Indication: POSTNASAL DRIP
     Dosage: 4SPR PER DAY
     Route: 045
     Dates: start: 20050701
  2. METOPROLOL TARTRATE [Concomitant]
  3. LIPITOR [Concomitant]
  4. DYAZIDE [Concomitant]
  5. IBUPROFEN [Concomitant]
  6. TRAVATAN [Concomitant]
  7. TIMOLOL MALEATE [Concomitant]

REACTIONS (3)
  - DYSPHONIA [None]
  - PHARYNGOLARYNGEAL PAIN [None]
  - VISUAL ACUITY REDUCED [None]
